FAERS Safety Report 14943062 (Version 2)
Quarter: 2019Q3

REPORT INFORMATION
  Report Type: Spontaneous
  Country: AU (occurrence: AU)
  Receive Date: 20180528
  Receipt Date: 20190710
  Transmission Date: 20191004
  Serious: Yes (Death, Other)
  Sender: FDA-Public Use
  Company Number: AU-BRISTOL-MYERS SQUIBB COMPANY-BMS-2018-046473

PATIENT
  Age: 27 Year
  Sex: Female

DRUGS (1)
  1. IPILIMUMAB [Suspect]
     Active Substance: IPILIMUMAB
     Indication: CHOROID MELANOMA
     Route: 065

REACTIONS (4)
  - Autoimmune hepatitis [Unknown]
  - Chorioretinitis [Recovering/Resolving]
  - Skin reaction [Unknown]
  - Malignant neoplasm progression [Fatal]
